FAERS Safety Report 14565570 (Version 1)
Quarter: 2018Q1

REPORT INFORMATION
  Report Type: Spontaneous
  Country: MA (occurrence: MA)
  Receive Date: 20180223
  Receipt Date: 20180223
  Transmission Date: 20180509
  Serious: Yes (Hospitalization, Other)
  Sender: FDA-Public Use
  Company Number: MA-009507513-1802MAR008142

PATIENT
  Age: 54 Year
  Sex: Male

DRUGS (6)
  1. CARBAMAZEPINE. [Concomitant]
     Active Substance: CARBAMAZEPINE
     Indication: THYMUS DISORDER
  2. PEGINTERFERON ALFA-2A. [Suspect]
     Active Substance: PEGINTERFERON ALFA-2A
     Indication: CHRONIC HEPATITIS C
     Dosage: 180 MICROGRAM, QW
  3. CARBAMAZEPINE. [Concomitant]
     Active Substance: CARBAMAZEPINE
     Indication: PROPHYLAXIS
     Dosage: 800 MG, QD
  4. TIANEPTINE [Concomitant]
     Active Substance: TIANEPTINE
     Indication: ANTIDEPRESSANT THERAPY
  5. RIBAVIRIN. [Suspect]
     Active Substance: RIBAVIRIN
     Indication: CHRONIC HEPATITIS C
     Dosage: 1200 MG, QD
     Route: 048
  6. TIANEPTINE [Concomitant]
     Active Substance: TIANEPTINE
     Indication: PROPHYLAXIS
     Dosage: 75 MG, QD

REACTIONS (1)
  - Major depression [Recovering/Resolving]
